FAERS Safety Report 8895328 (Version 1)
Quarter: 2012Q4

REPORT INFORMATION
  Report Type: 
  Country: US (occurrence: US)
  Receive Date: 20121108
  Receipt Date: 20121108
  Transmission Date: 20130627
  Serious: Yes (Other)
  Sender: FDA-Public Use
  Company Number: US-BAYER-2012-116834

PATIENT
  Age: 16 Year
  Sex: Female

DRUGS (3)
  1. NEXAVAR [Suspect]
     Indication: LYMPHANGIOSARCOMA
     Dosage: 400 mg, QD
  2. NEXAVAR [Suspect]
     Indication: LYMPHANGIOSARCOMA
     Dosage: 200 mg per day
  3. RAPAMYCIN [Concomitant]
     Indication: LYMPHANGIOSARCOMA
     Dosage: 0.7 to 3.2 mg, BID

REACTIONS (1)
  - Toxicity to various agents [None]
